FAERS Safety Report 18582986 (Version 1)
Quarter: 2020Q4

REPORT INFORMATION
  Report Type: Other
  Country: US (occurrence: US)
  Receive Date: 20201206
  Receipt Date: 20201206
  Transmission Date: 20210114
  Serious: Yes (Life-Threatening, Hospitalization, Other)
  Sender: FDA-Public Use
  Company Number: US-DEXPHARM-20201076

PATIENT
  Age: 29 Year
  Sex: Male

DRUGS (1)
  1. OMEPRAZOLE. [Suspect]
     Active Substance: OMEPRAZOLE
     Dosage: INTERMITTENTLY

REACTIONS (4)
  - Pancreatic pseudocyst [Unknown]
  - Pancreatic abscess [Recovering/Resolving]
  - Pancreatitis necrotising [Recovering/Resolving]
  - Biliary dilatation [Recovering/Resolving]
